FAERS Safety Report 7150129-2 (Version None)
Quarter: 2010Q4

REPORT INFORMATION
  Report Type: 
  Country: None (occurrence: None)
  Receive Date: 20101207
  Receipt Date: 20101207
  Transmission Date: 20110411
  Serious: Yes (Other)
  Sender: FDA-Public Use
  Company Number: None

PATIENT
  Age: 73 Year
  Sex: Female
  Weight: 60.782 kg

DRUGS (1)
  1. ALENDRONATE SODIUM [Suspect]
     Indication: BONE DENSITY DECREASED
     Dosage: 70 MG ONCE A WEEK PO
     Route: 048
     Dates: start: 20091206, end: 20100321

REACTIONS (7)
  - ABDOMINAL DISCOMFORT [None]
  - ARTHRALGIA [None]
  - GAIT DISTURBANCE [None]
  - MOVEMENT DISORDER [None]
  - MUSCULOSKELETAL STIFFNESS [None]
  - MYALGIA [None]
  - PAIN IN EXTREMITY [None]
